FAERS Safety Report 13189171 (Version 2)
Quarter: 2017Q1

REPORT INFORMATION
  Report Type: Spontaneous
  Country: JP (occurrence: JP)
  Receive Date: 20170206
  Receipt Date: 20170328
  Transmission Date: 20170428
  Serious: Yes (Other)
  Sender: FDA-Public Use
  Company Number: JP-JNJFOC-20170203695

PATIENT
  Age: 70 Year
  Sex: Male
  Weight: 72 kg

DRUGS (7)
  1. MEVALOTIN [Concomitant]
     Active Substance: PRAVASTATIN SODIUM
     Route: 048
     Dates: start: 20121003, end: 20160901
  2. SUINY [Concomitant]
     Active Substance: ANAGLIPTIN
     Indication: TYPE 2 DIABETES MELLITUS
     Route: 048
     Dates: start: 20130701, end: 20160901
  3. WARFARIN [Concomitant]
     Active Substance: WARFARIN
     Route: 048
     Dates: end: 20160901
  4. ARTIST [Concomitant]
     Active Substance: CARVEDILOL
     Route: 048
     Dates: end: 20160901
  5. CANAGLU [Suspect]
     Active Substance: CANAGLIFLOZIN
     Indication: TYPE 2 DIABETES MELLITUS
     Route: 048
     Dates: start: 20160830, end: 20160901
  6. VASOLATOR [Concomitant]
     Route: 062
     Dates: start: 20160425, end: 20160901
  7. BAYASPIRIN [Concomitant]
     Active Substance: ASPIRIN
     Route: 048
     Dates: end: 20160901

REACTIONS (1)
  - Acute myocardial infarction [Recovering/Resolving]

NARRATIVE: CASE EVENT DATE: 20160901
